FAERS Safety Report 8164937-2 (Version None)
Quarter: 2012Q1

REPORT INFORMATION
  Report Type: 
  Country: None (occurrence: None)
  Receive Date: 20120227
  Receipt Date: 20120217
  Transmission Date: 20120608
  Serious: No
  Sender: FDA-Public Use
  Company Number: US-BIOGENIDEC-2012BI006387

PATIENT
  Sex: Female

DRUGS (6)
  1. TYSABRI [Suspect]
     Indication: MULTIPLE SCLEROSIS
     Route: 042
     Dates: start: 20090201
  2. TYSABRI [Suspect]
     Route: 042
     Dates: start: 20090227, end: 20100903
  3. BENADRYL [Concomitant]
     Indication: PRURITUS
  4. AVONEX [Concomitant]
     Route: 030
     Dates: start: 20101003, end: 20110430
  5. AVONEX [Concomitant]
     Indication: MULTIPLE SCLEROSIS
     Route: 030
     Dates: start: 20010101, end: 20030131
  6. AVONEX [Concomitant]
     Route: 030
     Dates: start: 20070126, end: 20090117

REACTIONS (1)
  - UTERINE LEIOMYOMA [None]
